FAERS Safety Report 24682584 (Version 6)
Quarter: 2025Q1

REPORT INFORMATION
  Report Type: Report from Study
  Country: CO (occurrence: CO)
  Receive Date: 20241130
  Receipt Date: 20250304
  Transmission Date: 20250409
  Serious: Yes (Death, Hospitalization)
  Sender: ABBVIE
  Company Number: CO-ABBVIE-6021730

PATIENT
  Age: 76 Year
  Sex: Male

DRUGS (4)
  1. VENCLEXTA [Suspect]
     Active Substance: VENETOCLAX
     Indication: Acute myeloid leukaemia
     Dosage: FORM STRENGTH: 100 MILLIGRAM,  LAST ADMIN DATE- 2024
     Route: 048
     Dates: start: 20240501
  2. VENCLEXTA [Suspect]
     Active Substance: VENETOCLAX
     Indication: Acute myeloid leukaemia
     Dosage: 400 MILLIGRAM,  FORM STRENGTH: 100 MILLIGRAM
     Route: 048
     Dates: start: 20241201, end: 20241206
  3. VENCLEXTA [Suspect]
     Active Substance: VENETOCLAX
     Indication: Acute myeloid leukaemia
     Dosage: 400 MILLIGRAM,  FORM STRENGTH: 100 MILLIGRAM
     Route: 048
     Dates: start: 20241213, end: 20250102
  4. VENCLEXTA [Suspect]
     Active Substance: VENETOCLAX
     Indication: Acute myeloid leukaemia
     Dosage: 400 MILLIGRAM,  FORM STRENGTH: 100 MILLIGRAM
     Route: 048
     Dates: start: 20250103, end: 20250213

REACTIONS (12)
  - Bone marrow disorder [Fatal]
  - Haemoglobin decreased [Recovered/Resolved]
  - Abdominal discomfort [Recovering/Resolving]
  - Platelet count decreased [Recovered/Resolved]
  - Discouragement [Recovering/Resolving]
  - Constipation [Recovered/Resolved]
  - Pain [Recovering/Resolving]
  - Diarrhoea [Recovering/Resolving]
  - Splenomegaly [Unknown]
  - Fluid retention [Unknown]
  - Platelet count decreased [Not Recovered/Not Resolved]
  - Haemoglobin decreased [Not Recovered/Not Resolved]

NARRATIVE: CASE EVENT DATE: 20240501
